FAERS Safety Report 10455035 (Version 7)
Quarter: 2018Q3

REPORT INFORMATION
  Report Type: Spontaneous
  Country: US (occurrence: US)
  Receive Date: 20140915
  Receipt Date: 20180716
  Transmission Date: 20181010
  Serious: Yes (Death, Congenital Anomaly, Other)
  Sender: FDA-Public Use
  Company Number: US-009507513-1409USA006421

PATIENT
  Sex: Male

DRUGS (2)
  1. ISENTRESS [Suspect]
     Active Substance: RALTEGRAVIR POTASSIUM
     Dosage: TOTAL DAILY DOSE: 800 MG/DAY
     Route: 064
  2. TRUVADA [Suspect]
     Active Substance: EMTRICITABINE\TENOFOVIR DISOPROXIL FUMARATE
     Dosage: TOTAL DAILY DOSE: 1 TAB/CAPS, COURSE 1
     Route: 064

REACTIONS (4)
  - Congenital bladder anomaly [Unknown]
  - Congenital cystic kidney disease [Unknown]
  - Disease susceptibility [Fatal]
  - Foetal exposure during pregnancy [Recovered/Resolved]
